FAERS Safety Report 24561880 (Version 2)
Quarter: 2025Q1

REPORT INFORMATION
  Report Type: Spontaneous
  Country: CA (occurrence: CA)
  Receive Date: 20241029
  Receipt Date: 20250130
  Transmission Date: 20250408
  Serious: Yes (Hospitalization)
  Sender: ROCHE
  Company Number: CA-002147023-NVSC2024CA205738

PATIENT
  Age: 71 Year
  Sex: Female
  Weight: 91 kg

DRUGS (29)
  1. OMALIZUMAB [Suspect]
     Active Substance: OMALIZUMAB
     Indication: Asthma
     Dosage: 375 MG, Q2W (1 EVERY 2 WEEKS)
     Route: 050
  2. OMALIZUMAB [Suspect]
     Active Substance: OMALIZUMAB
     Dosage: 375 MG, Q2W (1 EVERY 2 WEEKS)
     Route: 050
  3. OMALIZUMAB [Suspect]
     Active Substance: OMALIZUMAB
     Dosage: 375 MG, Q2W (1 EVERY 2 WEEKS)
     Route: 050
  4. OMALIZUMAB [Suspect]
     Active Substance: OMALIZUMAB
     Dosage: 375 MG, Q2W (1 EVERY 2 WEEKS)
     Route: 050
  5. OMALIZUMAB [Suspect]
     Active Substance: OMALIZUMAB
     Dosage: 375 MG, Q2W (1 EVERY 2 WEEKS)
     Route: 050
  6. OMALIZUMAB [Suspect]
     Active Substance: OMALIZUMAB
     Dosage: 375 MG, Q2W (1 EVERY 2 WEEKS)
     Route: 050
  7. OMALIZUMAB [Suspect]
     Active Substance: OMALIZUMAB
     Dosage: 375 MG, Q2W (1 EVERY 2 WEEKS)
     Route: 050
  8. OMALIZUMAB [Suspect]
     Active Substance: OMALIZUMAB
     Dosage: 375 MG, Q2W (1 EVERY 2 WEEKS)
     Route: 050
  9. OMALIZUMAB [Suspect]
     Active Substance: OMALIZUMAB
     Dosage: 375 MG, Q2W (1 EVERY 2 WEEKS)
     Route: 050
  10. OMALIZUMAB [Suspect]
     Active Substance: OMALIZUMAB
     Dosage: 375 MG, Q2W (1 EVERY 2 WEEKS)
     Route: 050
  11. OMALIZUMAB [Suspect]
     Active Substance: OMALIZUMAB
     Dosage: 375 MG, Q2W (1 EVERY 2 WEEKS)
     Route: 050
  12. OMALIZUMAB [Suspect]
     Active Substance: OMALIZUMAB
     Dosage: 375 MG, Q2W (1 EVERY 2 WEEKS)
     Route: 050
  13. OMALIZUMAB [Suspect]
     Active Substance: OMALIZUMAB
     Dosage: 375 MG, Q2W (1 EVERY 2 WEEKS)
     Route: 050
  14. OMALIZUMAB [Suspect]
     Active Substance: OMALIZUMAB
     Route: 050
  15. ASPIRIN [Suspect]
     Active Substance: ASPIRIN
     Indication: Product used for unknown indication
     Route: 065
  16. ASPIRIN [Suspect]
     Active Substance: ASPIRIN
     Route: 065
  17. ATROVENT [Concomitant]
     Active Substance: IPRATROPIUM BROMIDE
     Indication: Asthma
     Route: 065
  18. CICLESONIDE [Concomitant]
     Active Substance: CICLESONIDE
     Indication: Asthma
     Dosage: 2 DOSAGE FORM, QD
     Route: 050
  19. GLICLAZIDE [Concomitant]
     Active Substance: GLICLAZIDE
     Indication: Product used for unknown indication
     Route: 065
  20. HYDROCHLOROTHIAZIDE [Concomitant]
     Active Substance: HYDROCHLOROTHIAZIDE
     Indication: Hypertension
     Route: 065
  21. LANTUS [Concomitant]
     Active Substance: INSULIN GLARGINE
     Indication: Diabetes mellitus
     Route: 050
  22. LISINOPRIL [Concomitant]
     Active Substance: LISINOPRIL
     Indication: Hypertension
     Route: 065
  23. OLODATEROL HYDROCHLORIDE [Concomitant]
     Active Substance: OLODATEROL HYDROCHLORIDE
     Indication: Asthma
     Dosage: 2 DOSAGE FORM, QD
     Route: 065
  24. PREDNISONE [Concomitant]
     Active Substance: PREDNISONE
     Indication: Asthma
     Route: 065
  25. ALBUTEROL [Concomitant]
     Active Substance: ALBUTEROL
     Indication: Asthma
     Dosage: 4 DOSAGE FORM, QD
     Route: 050
  26. UMECLIDINIUM BROMIDE [Concomitant]
     Active Substance: UMECLIDINIUM BROMIDE
     Indication: Asthma
     Route: 065
  27. VENTOLIN [Concomitant]
     Active Substance: ALBUTEROL SULFATE
     Indication: Product used for unknown indication
     Route: 065
  28. ALBUTEROL [Concomitant]
     Active Substance: ALBUTEROL
     Indication: Asthma
     Dosage: 2 DOSAGE FORM, QD
     Route: 050
  29. BREO ELLIPTA [Concomitant]
     Active Substance: FLUTICASONE FUROATE\VILANTEROL TRIFENATATE
     Indication: Product used for unknown indication
     Route: 065

REACTIONS (32)
  - Asthenopia [Not Recovered/Not Resolved]
  - Abdominal discomfort [Not Recovered/Not Resolved]
  - Abdominal rigidity [Not Recovered/Not Resolved]
  - Back pain [Not Recovered/Not Resolved]
  - Chest discomfort [Not Recovered/Not Resolved]
  - Concussion [Not Recovered/Not Resolved]
  - Contusion [Not Recovered/Not Resolved]
  - Drug hypersensitivity [Not Recovered/Not Resolved]
  - Dyspnoea [Not Recovered/Not Resolved]
  - Expiratory reserve volume decreased [Not Recovered/Not Resolved]
  - Fall [Not Recovered/Not Resolved]
  - Feeling abnormal [Not Recovered/Not Resolved]
  - Forced expiratory volume decreased [Not Recovered/Not Resolved]
  - Forced vital capacity decreased [Not Recovered/Not Resolved]
  - Functional residual capacity decreased [Not Recovered/Not Resolved]
  - Haemorrhage [Not Recovered/Not Resolved]
  - Headache [Not Recovered/Not Resolved]
  - Heart rate increased [Not Recovered/Not Resolved]
  - Hypersensitivity [Not Recovered/Not Resolved]
  - Incorrect dose administered [Not Recovered/Not Resolved]
  - Lethargy [Not Recovered/Not Resolved]
  - Malaise [Not Recovered/Not Resolved]
  - Middle insomnia [Not Recovered/Not Resolved]
  - Nausea [Not Recovered/Not Resolved]
  - Obesity [Not Recovered/Not Resolved]
  - Pain [Not Recovered/Not Resolved]
  - Pruritus [Not Recovered/Not Resolved]
  - Rash [Not Recovered/Not Resolved]
  - Scratch [Not Recovered/Not Resolved]
  - Slow vital capacity decreased [Not Recovered/Not Resolved]
  - Weight decreased [Not Recovered/Not Resolved]
  - Wheezing [Not Recovered/Not Resolved]
